FAERS Safety Report 4429038-5 (Version None)
Quarter: 2004Q3

REPORT INFORMATION
  Report Type: 
  Country: None (occurrence: None)
  Receive Date: 20040726
  Receipt Date: 20040308
  Transmission Date: 20050211
  Serious: No
  Sender: FDA-Public Use
  Company Number: USA040361360

PATIENT
  Age: 65 Year
  Sex: Female

DRUGS (7)
  1. FORTEO [Suspect]
     Dates: start: 20040224
  2. OGEN [Concomitant]
  3. LIPITOR [Concomitant]
  4. CALCIUM [Concomitant]
  5. PRILOSEC [Concomitant]
  6. VITAMIN E [Concomitant]
  7. VITAMIN C [Concomitant]

REACTIONS (3)
  - ARTHRALGIA [None]
  - MUSCLE CRAMP [None]
  - PAIN IN EXTREMITY [None]
